FAERS Safety Report 23393914 (Version 1)
Quarter: 2024Q1

REPORT INFORMATION
  Report Type: Spontaneous
  Country: US (occurrence: US)
  Receive Date: 20240111
  Receipt Date: 20240111
  Transmission Date: 20240410
  Serious: No
  Sender: FDA-Public Use
  Company Number: US-MYLANLABS-2023M1132881

PATIENT
  Age: 69 Year
  Sex: Female

DRUGS (1)
  1. TYRVAYA [Suspect]
     Active Substance: VARENICLINE TARTRATE
     Indication: Product used for unknown indication
     Dosage: 0.03 MILLIGRAM
     Route: 045
     Dates: start: 20231127

REACTIONS (3)
  - Oropharyngeal pain [Unknown]
  - Dysphonia [Unknown]
  - Headache [Unknown]

NARRATIVE: CASE EVENT DATE: 20231127
